FAERS Safety Report 7420735-6 (Version None)
Quarter: 2011Q2

REPORT INFORMATION
  Report Type: 
  Country: None (occurrence: None)
  Receive Date: 20110408
  Receipt Date: 20110401
  Transmission Date: 20111010
  Serious: Yes (Life-Threatening, Hospitalization)
  Sender: FDA-Public Use
  Company Number: 2011MA002161

PATIENT
  Age: 69 Year
  Sex: Male

DRUGS (9)
  1. METFORMIN HYDROCHLORIDE [Suspect]
     Indication: TYPE 2 DIABETES MELLITUS
     Dosage: 500 MG; TID; PO
     Route: 048
     Dates: start: 20110105, end: 20110126
  2. TIMOLOL [Concomitant]
  3. IBUPROFEN [Suspect]
     Indication: TOOTHACHE
     Dosage: PO
     Route: 048
     Dates: start: 20110121, end: 20110126
  4. METOCLOPRAMIDE [Concomitant]
  5. BENDROFLUMETHIAZIDE [Concomitant]
  6. SIMVASTATIN [Concomitant]
  7. AMLODIPINE [Concomitant]
  8. ACETYLSALICYLIC ACID SRT [Concomitant]
  9. IBUPROFEN [Suspect]
     Indication: TOOTHACHE
     Dosage: PO
     Route: 048
     Dates: start: 20110121, end: 20110126

REACTIONS (4)
  - VOMITING [None]
  - BLOOD SODIUM INCREASED [None]
  - DIARRHOEA [None]
  - RENAL FAILURE ACUTE [None]
